FAERS Safety Report 15636901 (Version 2)
Quarter: 2019Q1

REPORT INFORMATION
  Report Type: Spontaneous
  Country: US (occurrence: US)
  Receive Date: 20181120
  Receipt Date: 20190101
  Transmission Date: 20190417
  Serious: No
  Sender: FDA-Public Use
  Company Number: US-ASTRAZENECA-2018SF42441

PATIENT
  Age: 758 Month
  Sex: Female
  Weight: 77.1 kg

DRUGS (7)
  1. TUDORZA PRESSAIR [Suspect]
     Active Substance: ACLIDINIUM BROMIDE
     Indication: CHRONIC OBSTRUCTIVE PULMONARY DISEASE
     Dosage: ONE PUFF PER DAY
     Route: 055
     Dates: start: 201801, end: 201803
  2. SYNTHROID [Concomitant]
     Active Substance: LEVOTHYROXINE SODIUM
     Indication: HYPOTHYROIDISM
     Route: 048
     Dates: start: 1998
  3. LEXIPRO [Concomitant]
     Indication: DEPRESSION
  4. TUDORZA PRESSAIR [Suspect]
     Active Substance: ACLIDINIUM BROMIDE
     Indication: CHRONIC OBSTRUCTIVE PULMONARY DISEASE
     Route: 055
     Dates: start: 201801
  5. ADVAIR HFA [Concomitant]
     Active Substance: FLUTICASONE PROPIONATE\SALMETEROL XINAFOATE
     Indication: ASTHMA
  6. ESTRADIOL. [Concomitant]
     Active Substance: ESTRADIOL
     Indication: MENOPAUSE
     Route: 048
     Dates: start: 2005
  7. SINGULAIR [Concomitant]
     Active Substance: MONTELUKAST SODIUM
     Indication: ASTHMA
     Route: 048
     Dates: start: 2001

REACTIONS (10)
  - Asthma [Recovering/Resolving]
  - Dyspnoea [Unknown]
  - Off label use [Recovered/Resolved]
  - Malaise [Unknown]
  - Product dose omission [Unknown]
  - Intentional product misuse [Unknown]
  - Wheezing [Unknown]
  - Device malfunction [Unknown]
  - Gait disturbance [Unknown]
  - Feeling hot [Unknown]

NARRATIVE: CASE EVENT DATE: 201801
